FAERS Safety Report 22157591 (Version 1)
Quarter: 2023Q1

REPORT INFORMATION
  Report Type: Spontaneous
  Country: US (occurrence: US)
  Receive Date: 20230330
  Receipt Date: 20230330
  Transmission Date: 20230418
  Serious: No
  Sender: FDA-Public Use
  Company Number: US-Calliditas-2023CAL00318

PATIENT
  Age: 41 Year
  Sex: Male

DRUGS (1)
  1. TARPEYO [Suspect]
     Active Substance: BUDESONIDE
     Indication: Selective IgA immunodeficiency
     Dosage: 16 MG (4MG CAPSULES) DAILY
     Route: 048
     Dates: start: 20230307

REACTIONS (2)
  - Abdominal pain upper [Unknown]
  - Off label use [Unknown]
